FAERS Safety Report 19853668 (Version 1)
Quarter: 2021Q3

REPORT INFORMATION
  Report Type: Spontaneous
  Country: FR (occurrence: FR)
  Receive Date: 20210919
  Receipt Date: 20210919
  Transmission Date: 20211014
  Serious: Yes (Other)
  Sender: FDA-Public Use
  Company Number: FR-BAXTER-2021BAX028955

PATIENT
  Age: 26 Year
  Sex: Female

DRUGS (5)
  1. NEFOPAM [Concomitant]
     Active Substance: NEFOPAM
     Indication: ANALGESIC THERAPY
     Route: 065
  2. PHLOROGLUCINOL [Concomitant]
     Active Substance: PHLOROGLUCINOL
     Indication: ANALGESIC THERAPY
     Route: 065
  3. PARACETAMOL 10 MG/ML SOLUTION FOR INFUSION [Suspect]
     Active Substance: ACETAMINOPHEN
     Indication: ANALGESIC THERAPY
     Route: 042
  4. TRAMADOL. [Suspect]
     Active Substance: TRAMADOL
     Indication: ANALGESIC THERAPY
     Route: 065
  5. NICARDIPINE [Concomitant]
     Active Substance: NICARDIPINE
     Indication: POSTERIOR REVERSIBLE ENCEPHALOPATHY SYNDROME
     Route: 065

REACTIONS (1)
  - Porphyria [Recovered/Resolved]
